FAERS Safety Report 8226389-3 (Version None)
Quarter: 2012Q1

REPORT INFORMATION
  Report Type: 
  Country: None (occurrence: None)
  Receive Date: 20120321
  Receipt Date: 20101006
  Transmission Date: 20120608
  Serious: Yes (Other)
  Sender: FDA-Public Use
  Company Number: PHHY2010CA093610

PATIENT

DRUGS (1)
  1. ALISKIREN [Suspect]

REACTIONS (5)
  - BLOOD CHOLESTEROL INCREASED [None]
  - URINE ALBUMIN/CREATININE RATIO INCREASED [None]
  - GLYCOSYLATED HAEMOGLOBIN INCREASED [None]
  - MICROALBUMINURIA [None]
  - BLOOD CREATINE INCREASED [None]
